FAERS Safety Report 25156836 (Version 1)
Quarter: 2025Q2

REPORT INFORMATION
  Report Type: Spontaneous
  Country: FR (occurrence: FR)
  Receive Date: 20250403
  Receipt Date: 20250403
  Transmission Date: 20250716
  Serious: Yes (Hospitalization)
  Sender: ALEXION PHARMACEUTICALS
  Company Number: FR-PFIZER INC-PV202500034182

PATIENT
  Age: 73 Year

DRUGS (2)
  1. DAPAGLIFLOZIN [Suspect]
     Active Substance: DAPAGLIFLOZIN
     Indication: Cardiac failure
     Dosage: 10 MG, DAILY
  2. ALDACTONE [Suspect]
     Active Substance: SPIRONOLACTONE
     Route: 065

REACTIONS (2)
  - Glomerular filtration rate decreased [Recovering/Resolving]
  - Fatigue [Unknown]
